FAERS Safety Report 6130072-8 (Version None)
Quarter: 2009Q1

REPORT INFORMATION
  Report Type: 
  Country: None (occurrence: None)
  Receive Date: 20090324
  Receipt Date: 20090317
  Transmission Date: 20090719
  Serious: Yes (Other)
  Sender: FDA-Public Use
  Company Number: US-ASTRAZENECA-2009UW06841

PATIENT
  Age: 48 Year
  Sex: Female
  Weight: 58.1 kg

DRUGS (3)
  1. ELAVIL [Suspect]
     Route: 048
     Dates: start: 19990101
  2. WELLBUTRIN [Concomitant]
     Indication: ANXIETY
  3. PREVACID [Concomitant]
     Indication: DYSPEPSIA

REACTIONS (1)
  - AMNESIA [None]
